FAERS Safety Report 10207850 (Version 1)
Quarter: 2014Q2

REPORT INFORMATION
  Report Type: Spontaneous
  Country: US (occurrence: US)
  Receive Date: 20140530
  Receipt Date: 20140530
  Transmission Date: 20141212
  Serious: No
  Sender: FDA-Public Use
  Company Number: US-GLAXOSMITHKLINE-A1062890A

PATIENT
  Age: 65 Year
  Sex: Female

DRUGS (3)
  1. VENTOLIN [Suspect]
     Indication: ASTHMA
     Route: 055
     Dates: start: 2010
  2. NEBULIZER [Concomitant]
  3. THYROID MEDICATION [Concomitant]

REACTIONS (1)
  - Drug ineffective [Recovered/Resolved]
